FAERS Safety Report 24239329 (Version 1)
Quarter: 2024Q3

REPORT INFORMATION
  Report Type: Spontaneous
  Country: ES (occurrence: ES)
  Receive Date: 20240822
  Receipt Date: 20240822
  Transmission Date: 20241016
  Serious: Yes (Other)
  Sender: BAXTER
  Company Number: None

PATIENT
  Sex: Male

DRUGS (3)
  1. DOXORUBICIN [Interacting]
     Active Substance: DOXORUBICIN
     Dosage: 50 MG/M2, 1 X TOTAL, (202A)
     Route: 041
     Dates: start: 20240530, end: 20240530
  2. DACARBAZINE [Interacting]
     Active Substance: DACARBAZINE
     Dosage: 500 MG/M2, 1 X TOTAL, (171A)
     Route: 041
     Dates: start: 20240530, end: 20240530
  3. VINBLASTINE SULFATE [Interacting]
     Active Substance: VINBLASTINE SULFATE
     Dosage: 12 MG/M2, 1 X TOTAL, (807SU)
     Route: 041
     Dates: start: 20240530, end: 20240530

REACTIONS (3)
  - Wrong dose [Recovered/Resolved]
  - Abdominal pain [Unknown]
  - Neutropenia [Unknown]

NARRATIVE: CASE EVENT DATE: 20240530
